FAERS Safety Report 5632425-0 (Version None)
Quarter: 2008Q1

REPORT INFORMATION
  Report Type: 
  Country: None (occurrence: None)
  Receive Date: 20080220
  Receipt Date: 20070907
  Transmission Date: 20080703
  Serious: No
  Sender: FDA-Public Use
  Company Number: US-ASTRAZENECA-2007UW21299

PATIENT
  Sex: Female

DRUGS (1)
  1. PLENDIL [Suspect]
     Route: 050

REACTIONS (1)
  - WRONG TECHNIQUE IN DRUG USAGE PROCESS [None]
